FAERS Safety Report 5010739-5 (Version None)
Quarter: 2006Q2

REPORT INFORMATION
  Report Type: 
  Country: None (occurrence: None)
  Receive Date: 20060523
  Receipt Date: 20060511
  Transmission Date: 20061013
  Serious: Yes (Other)
  Sender: FDA-Public Use
  Company Number: HQWYE625923JUN05

PATIENT
  Age: 34 Year
  Sex: Female
  Weight: 58.1 kg

DRUGS (7)
  1. PROGRAF [Suspect]
     Indication: PROPHYLAXIS AGAINST TRANSPLANT REJECTION
     Dosage: 3 MG 2X PER 1 DAY, ORAL
     Route: 048
     Dates: start: 20041027, end: 20050519
  2. CELLCEPT [Concomitant]
  3. ZENAPAX [Concomitant]
  4. PREDNISONE TAB [Concomitant]
  5. TOPROL-XL [Concomitant]
  6. SINGULAIR [Concomitant]
  7. PEPCID [Concomitant]

REACTIONS (6)
  - BLASTOMYCOSIS [None]
  - DRUG INEFFECTIVE [None]
  - HYPERMETABOLISM [None]
  - LUNG NEOPLASM MALIGNANT [None]
  - METASTASES TO LYMPH NODES [None]
  - PNEUMONIA [None]
